FAERS Safety Report 7466183-4 (Version None)
Quarter: 2011Q2

REPORT INFORMATION
  Report Type: 
  Country: None (occurrence: None)
  Receive Date: 20110509
  Receipt Date: 20110425
  Transmission Date: 20111010
  Serious: Yes (Other)
  Sender: FDA-Public Use
  Company Number: US-ELI_LILLY_AND_COMPANY-US201104007489

PATIENT
  Age: 49 Year
  Sex: Female

DRUGS (2)
  1. CYMBALTA [Suspect]
     Indication: DEPRESSION
     Dosage: UNK, UNKNOWN
     Dates: start: 19910101
  2. CYMBALTA [Suspect]
     Dosage: 60 MG, BID

REACTIONS (7)
  - BACK PAIN [None]
  - DEPRESSION [None]
  - INSOMNIA [None]
  - MOBILITY DECREASED [None]
  - SPINAL FUSION SURGERY [None]
  - CRYING [None]
  - APHAGIA [None]
